FAERS Safety Report 5507999-0 (Version None)
Quarter: 2007Q4

REPORT INFORMATION
  Report Type: 
  Country: None (occurrence: None)
  Receive Date: 20071106
  Receipt Date: 20071024
  Transmission Date: 20080405
  Serious: Yes (Hospitalization, Other)
  Sender: FDA-Public Use
  Company Number: US-PFIZER INC-2006119890

PATIENT
  Sex: Female
  Weight: 53.1 kg

DRUGS (4)
  1. BEXTRA [Suspect]
     Indication: PAIN
  2. VIOXX [Suspect]
     Indication: PAIN
     Route: 048
     Dates: start: 20020925
  3. MORPHINE [Concomitant]
     Indication: PAIN
     Dates: start: 20030318, end: 20051019
  4. IBUPROFEN [Concomitant]
     Indication: PAIN
     Dates: start: 20030227, end: 20060124

REACTIONS (1)
  - TRANSIENT ISCHAEMIC ATTACK [None]
